FAERS Safety Report 4863924-7 (Version None)
Quarter: 2005Q4

REPORT INFORMATION
  Report Type: 
  Country: None (occurrence: None)
  Receive Date: 20051219
  Receipt Date: 20051205
  Transmission Date: 20060501
  Serious: Yes (Other)
  Sender: FDA-Public Use
  Company Number: JP-2005-025134

PATIENT
  Age: 32 Year
  Sex: Female

DRUGS (23)
  1. BETASERON [Suspect]
     Indication: RELAPSING-REMITTING MULTIPLE SCLEROSIS
     Dosage: SEE IMAGE
     Dates: start: 20010307, end: 20010311
  2. BETASERON [Suspect]
     Indication: RELAPSING-REMITTING MULTIPLE SCLEROSIS
     Dosage: SEE IMAGE
     Dates: start: 20010313, end: 20030306
  3. BETASERON [Suspect]
     Indication: RELAPSING-REMITTING MULTIPLE SCLEROSIS
     Dosage: SEE IMAGE
     Dates: start: 20030307, end: 20040306
  4. BETASERON [Suspect]
     Indication: RELAPSING-REMITTING MULTIPLE SCLEROSIS
     Dosage: SEE IMAGE
     Dates: start: 20040307, end: 20050306
  5. BETASERON [Suspect]
     Indication: RELAPSING-REMITTING MULTIPLE SCLEROSIS
     Dosage: SEE IMAGE
     Dates: end: 20050520
  6. PREDONINE TABLET [Concomitant]
  7. DEPAS TABLET [Concomitant]
  8. LOXONIN (LOXOPROFEN SODIUM) TABLET [Concomitant]
  9. ADETPHOS (ADENOSINE TRIPHOSPHATE, DISODIUM SALT) [Concomitant]
  10. METHYCOBAL (MECOBALAMIN) [Concomitant]
  11. PHENOBAL 10% (PHENOBARBITAL) POWDER [Concomitant]
  12. TRYPTANOL [Concomitant]
  13. MEILAX (ETHYL LOFLAZEPATE) [Concomitant]
  14. LENDORM [Concomitant]
  15. GASTER (FAMOTIDINE) TABLET [Concomitant]
  16. MAALOX (MAGNESIUM HYDROXIDE, ALUMINIUM HYDROXIDE GEL) [Concomitant]
  17. PL GRAN. (PROMETHAZINE METHYLENE DISALICYLATE, SALICYLAMIDE) GRANULES [Concomitant]
  18. ISODINE GARGLE (POVIDONE-IODINE) SOLUTION [Concomitant]
  19. MINOCYCLINE HCL [Concomitant]
  20. CINAL TABLET [Concomitant]
  21. CALCIUM LACTATE (CALCIUM LACTATE) [Concomitant]
  22. ALFAROL (ALFACALCIDOL) [Concomitant]
  23. MUCOSTA (REBAMIPIDE) [Concomitant]

REACTIONS (2)
  - RELAPSING-REMITTING MULTIPLE SCLEROSIS [None]
  - THYROID NEOPLASM [None]
